FAERS Safety Report 9795303 (Version 1)
Quarter: 2014Q1

REPORT INFORMATION
  Report Type: Spontaneous
  Country: US (occurrence: US)
  Receive Date: 20140103
  Receipt Date: 20140103
  Transmission Date: 20141002
  Serious: Yes (Hospitalization)
  Sender: FDA-Public Use
  Company Number: US-BRISTOL-MYERS SQUIBB COMPANY-19940717

PATIENT
  Age: 62 Year
  Sex: Female
  Weight: 66.21 kg

DRUGS (2)
  1. ABATACEPT SUBQ INJECTION 125MG/ML [Suspect]
     Route: 058
  2. ACETYLSALICYLIC ACID [Concomitant]
     Dosage: 1DF=81 UNITS NOS

REACTIONS (3)
  - Hypoaesthesia [Unknown]
  - Anaemia [Unknown]
  - Contusion [Unknown]
